FAERS Safety Report 21704911 (Version 1)
Quarter: 2022Q4

REPORT INFORMATION
  Report Type: Spontaneous
  Country: US (occurrence: US)
  Receive Date: 20221209
  Receipt Date: 20221209
  Transmission Date: 20230113
  Serious: No
  Sender: FDA-Public Use
  Company Number: US-SANOFI-01395603

PATIENT
  Age: 57 Year
  Sex: Male

DRUGS (1)
  1. ELITEK [Suspect]
     Active Substance: RASBURICASE
     Indication: Hepatic fibrosis
     Dosage: 0.2 MG/KG
     Route: 065

REACTIONS (1)
  - Product use in unapproved indication [Unknown]
